FAERS Safety Report 4358121-8 (Version None)
Quarter: 2004Q2

REPORT INFORMATION
  Report Type: 
  Country: None (occurrence: None)
  Receive Date: 20040510
  Receipt Date: 20040429
  Transmission Date: 20050107
  Serious: Yes (Other)
  Sender: FDA-Public Use
  Company Number: S04-USA-00316-01

PATIENT
  Age: 52 Year
  Sex: Female
  Weight: 93.441 kg

DRUGS (6)
  1. LEXAPRO [Suspect]
     Indication: ANXIETY
     Dosage: 10 MG QD PO
     Route: 048
     Dates: start: 20030820, end: 20030917
  2. LEXAPRO [Suspect]
     Indication: DEPRESSION
     Dosage: 10 MG QD PO
     Route: 048
     Dates: start: 20030820, end: 20030917
  3. LIPITOR [Concomitant]
  4. LOPID [Concomitant]
  5. EVISTA [Concomitant]
  6. SYNTHROID [Concomitant]

REACTIONS (5)
  - CHEST PAIN [None]
  - DYSPNOEA EXERTIONAL [None]
  - ELECTROCARDIOGRAM QT CORRECTED INTERVAL PROLONGED [None]
  - ELECTROCARDIOGRAM QT PROLONGED [None]
  - HEART RATE DECREASED [None]
